FAERS Safety Report 5285483-X (Version None)
Quarter: 2007Q1

REPORT INFORMATION
  Report Type: 
  Country: None (occurrence: None)
  Receive Date: 20070328
  Receipt Date: 20070319
  Transmission Date: 20070707
  Serious: Yes (Hospitalization, Other)
  Sender: FDA-Public Use
  Company Number: 232200K07USA

PATIENT
  Age: 57 Year
  Sex: Female

DRUGS (4)
  1. REBIF [Suspect]
     Indication: MULTIPLE SCLEROSIS
     Dosage: 44 MCG, 3 IN 1 WEEKS, SUBCUTANEOUS
     Route: 058
     Dates: start: 20040227
  2. BENICAR [Concomitant]
  3. SYNTHROID [Concomitant]
  4. VICODIN [Concomitant]

REACTIONS (2)
  - ABDOMINAL PAIN [None]
  - UMBILICAL HERNIA REPAIR [None]
